FAERS Safety Report 6491988-6 (Version None)
Quarter: 2009Q4

REPORT INFORMATION
  Report Type: 
  Country: None (occurrence: None)
  Receive Date: 20091208
  Receipt Date: 20091123
  Transmission Date: 20100525
  Serious: Yes (Other)
  Sender: FDA-Public Use
  Company Number: TPH-00238

PATIENT
  Sex: Female

DRUGS (1)
  1. ETHINYL ESTRADIOL AND LEVONORGESTREL [Suspect]
     Indication: CONTRACEPTION

REACTIONS (2)
  - DEAFNESS [None]
  - OTOSCLEROSIS [None]
